FAERS Safety Report 19392723 (Version 2)
Quarter: 2022Q4

REPORT INFORMATION
  Report Type: Spontaneous
  Country: DE (occurrence: DE)
  Receive Date: 20210609
  Receipt Date: 20221018
  Transmission Date: 20230113
  Serious: Yes (Hospitalization)
  Sender: FDA-Public Use
  Company Number: DE-ADRED-06401-01

PATIENT
  Age: 81 Year
  Sex: Female

DRUGS (3)
  1. JARDIANCE [Suspect]
     Active Substance: EMPAGLIFLOZIN
     Indication: Product used for unknown indication
     Dosage: 10 MG, 1-0-0-0, TABLETTEN
     Route: 048
  2. lercanidipin Heumann 10mg [Concomitant]
     Indication: Product used for unknown indication
     Dosage: 10 MG, 1-0-1-0, TABLETS
     Route: 048
  3. metoprolol succinat TAD 47.5mg [Concomitant]
     Indication: Product used for unknown indication
     Dosage: 47.5 MG, 1-0-1-0, TABLETS
     Route: 048

REACTIONS (6)
  - Vomiting [Unknown]
  - Haematocrit increased [Unknown]
  - Glycosuria [Unknown]
  - Abdominal pain [Unknown]
  - Flank pain [Unknown]
  - Dehydration [Unknown]
